FAERS Safety Report 7730565-3 (Version None)
Quarter: 2011Q3

REPORT INFORMATION
  Report Type: 
  Country: None (occurrence: None)
  Receive Date: 20110906
  Receipt Date: 20110826
  Transmission Date: 20111222
  Serious: Yes (Death, Other)
  Sender: FDA-Public Use
  Company Number: BE-MILLENNIUM PHARMACEUTICALS, INC.-2011-04053

PATIENT

DRUGS (1)
  1. VELCADE [Suspect]
     Indication: MULTIPLE MYELOMA

REACTIONS (6)
  - MULTI-ORGAN FAILURE [None]
  - EYELID PTOSIS [None]
  - DIPLOPIA [None]
  - PNEUMONIA [None]
  - SEPTIC SHOCK [None]
  - IIIRD NERVE PARALYSIS [None]
